FAERS Safety Report 7306474-0 (Version None)
Quarter: 2011Q1

REPORT INFORMATION
  Report Type: 
  Country: None (occurrence: None)
  Receive Date: 20110222
  Receipt Date: 20110215
  Transmission Date: 20110831
  Serious: Yes (Death, Hospitalization)
  Sender: FDA-Public Use
  Company Number: FR-CELGENEUS-056-C5013-11010841

PATIENT
  Sex: Female

DRUGS (20)
  1. IMODIUM [Concomitant]
     Indication: PROPHYLAXIS
     Dosage: MAXIMUM 6 TABLETS DAILY
     Route: 048
     Dates: start: 20100207
  2. ALTOCEL GE [Concomitant]
     Indication: GASTROENTERITIS
     Route: 048
     Dates: start: 20100208
  3. CC-5013 [Suspect]
     Indication: MULTIPLE MYELOMA
     Route: 048
     Dates: start: 20090225
  4. NEO RECORMON [Concomitant]
     Indication: PROPHYLAXIS
     Route: 058
     Dates: start: 20090825, end: 20100720
  5. DEXAMETHASONE [Suspect]
     Indication: MULTIPLE MYELOMA
     Route: 065
     Dates: start: 20090225
  6. NOVONORM [Concomitant]
     Indication: DIABETES MELLITUS
     Route: 048
     Dates: start: 20080916
  7. ASPIRIN [Concomitant]
     Indication: THROMBOSIS PROPHYLAXIS
     Route: 048
     Dates: start: 20090210
  8. DEXAMETHASONE [Suspect]
     Route: 065
     Dates: start: 20110106
  9. LANTUS [Concomitant]
     Indication: DIABETES MELLITUS
     Route: 058
     Dates: start: 20090105
  10. GRANOCYTE 34 [Concomitant]
     Indication: NEUTROPENIA
     Route: 058
     Dates: start: 20090615
  11. MODOPAR [Concomitant]
     Route: 048
     Dates: start: 20091119
  12. ALTOCEL GE [Concomitant]
     Indication: PROPHYLAXIS
  13. CC-5013 [Suspect]
     Route: 048
     Dates: start: 20110106
  14. ACEBUTOLOL [Concomitant]
     Route: 048
     Dates: start: 20081227
  15. BURINEX [Concomitant]
     Route: 048
     Dates: start: 20081227
  16. AERIUS [Concomitant]
     Indication: PROPHYLAXIS
     Route: 048
     Dates: start: 20090207
  17. INNOHEP [Concomitant]
     Indication: THROMBOSIS PROPHYLAXIS
     Route: 058
     Dates: start: 20090605
  18. NEO RECORMON [Concomitant]
     Route: 058
     Dates: start: 20100721
  19. AMLOR [Concomitant]
     Route: 048
     Dates: start: 20080616
  20. NABUMETONE [Concomitant]
     Dosage: 1 PILL DAILY
     Route: 048
     Dates: start: 20100526

REACTIONS (2)
  - METASTASES TO CENTRAL NERVOUS SYSTEM [None]
  - FALL [None]
